FAERS Safety Report 14690082 (Version 5)
Quarter: 2019Q1

REPORT INFORMATION
  Report Type: Report from Study
  Country: CA (occurrence: CA)
  Receive Date: 20180328
  Receipt Date: 20190117
  Transmission Date: 20190417
  Serious: Yes (Other)
  Sender: FDA-Public Use
  Company Number: CA-JNJFOC-20180332767

PATIENT
  Age: 63 Year
  Sex: Female
  Weight: 50 kg

DRUGS (15)
  1. REMICADE [Suspect]
     Active Substance: INFLIXIMAB
     Indication: PYODERMA GANGRENOSUM
     Dosage: STRENGTH = 100 MG
     Route: 042
     Dates: start: 20171006
  2. FLAMAZINE [Concomitant]
     Active Substance: SILVER SULFADIAZINE
     Route: 062
  3. PERCOCET [Concomitant]
     Active Substance: ACETAMINOPHEN\OXYCODONE HYDROCHLORIDE
     Route: 048
  4. FOLIC ACID. [Concomitant]
     Active Substance: FOLIC ACID
     Route: 048
  5. RABEPRAZOLE [Concomitant]
     Active Substance: RABEPRAZOLE
     Route: 048
  6. METHOTREXATE. [Concomitant]
     Active Substance: METHOTREXATE
     Route: 048
  7. VITAMIN C [Concomitant]
     Active Substance: ASCORBIC ACID
     Route: 048
  8. REMICADE [Suspect]
     Active Substance: INFLIXIMAB
     Indication: PYODERMA GANGRENOSUM
     Dosage: ALSO REPORTED AS 10 MG/KG
     Route: 042
  9. CALCIUM [Concomitant]
     Active Substance: CALCIUM
     Route: 048
  10. ZINC. [Concomitant]
     Active Substance: ZINC
     Route: 048
  11. SYNTHROID [Concomitant]
     Active Substance: LEVOTHYROXINE SODIUM
     Route: 048
  12. ALENDRONATE [Concomitant]
     Active Substance: ALENDRONATE SODIUM
     Route: 048
  13. COLCHICINE. [Concomitant]
     Active Substance: COLCHICINE
     Route: 048
  14. VITAMIN D [Concomitant]
     Active Substance: CHOLECALCIFEROL
     Route: 048
  15. FERROUS GLUCONATE [Concomitant]
     Active Substance: FERROUS GLUCONATE
     Route: 048

REACTIONS (4)
  - Drug ineffective for unapproved indication [Unknown]
  - Staphylococcal infection [Not Recovered/Not Resolved]
  - Pyoderma gangrenosum [Unknown]
  - Off label use [Unknown]

NARRATIVE: CASE EVENT DATE: 20171006
